FAERS Safety Report 4701675-X (Version None)
Quarter: 2005Q2

REPORT INFORMATION
  Report Type: 
  Country: None (occurrence: None)
  Receive Date: 20050627
  Receipt Date: 20050616
  Transmission Date: 20051028
  Serious: Yes (Life-Threatening)
  Sender: FDA-Public Use
  Company Number: 2005090787

PATIENT
  Age: 58 Year
  Sex: Male

DRUGS (3)
  1. VIRACEPT [Suspect]
     Indication: HIV INFECTION
     Dosage: 2500 MG (DAILY), ORAL
     Route: 048
     Dates: start: 20001016, end: 20040528
  2. EPIVIR [Suspect]
     Indication: HIV INFECTION
     Dosage: 300 MG (150 MG, BID), ORAL
     Route: 048
     Dates: start: 20000904, end: 20040528
  3. ZERIT [Suspect]
     Indication: HIV INFECTION
     Dosage: 80 MG (DAILY), ORAL
     Route: 048
     Dates: start: 20000904, end: 20040526

REACTIONS (1)
  - ACUTE MYOCARDIAL INFARCTION [None]
